FAERS Safety Report 8534531-X (Version None)
Quarter: 2012Q3

REPORT INFORMATION
  Report Type: 
  Country: None (occurrence: None)
  Receive Date: 20120724
  Receipt Date: 20120717
  Transmission Date: 20120928
  Serious: Yes (Other)
  Sender: FDA-Public Use
  Company Number: US-UCBSA-062051

PATIENT
  Age: 62 Year
  Sex: Female

DRUGS (1)
  1. CIMZIA [Suspect]
     Route: 058
     Dates: start: 20120411, end: 20120628

REACTIONS (4)
  - GAIT DISTURBANCE [None]
  - PAIN [None]
  - VOMITING [None]
  - WEIGHT DECREASED [None]
